FAERS Safety Report 26076089 (Version 1)
Quarter: 2025Q4

REPORT INFORMATION
  Report Type: Spontaneous
  Country: RS (occurrence: RS)
  Receive Date: 20251121
  Receipt Date: 20251121
  Transmission Date: 20260118
  Serious: Yes (Hospitalization, Other)
  Sender: BRISTOL-MYERS SQUIBB COMPANY
  Company Number: RS-BRISTOL-MYERS SQUIBB COMPANY-2025-155627

PATIENT
  Age: 69 Year
  Sex: Female

DRUGS (12)
  1. OPDIVO [Suspect]
     Active Substance: NIVOLUMAB
     Indication: Malignant melanoma
     Dosage: 1 PER 3 WEEK
     Route: 042
     Dates: start: 202503
  2. OPDIVO [Suspect]
     Active Substance: NIVOLUMAB
     Dosage: 1 PER 3 WEEK
     Route: 042
     Dates: start: 202407, end: 202501
  3. OPDIVO [Suspect]
     Active Substance: NIVOLUMAB
     Dosage: 1 PER 3 WEEK
     Route: 042
     Dates: start: 202508
  4. OPDIVO [Suspect]
     Active Substance: NIVOLUMAB
     Dosage: 1 PER 3 WEEK, THIRD CYCLE
     Route: 042
     Dates: start: 20251021
  5. YERVOY [Suspect]
     Active Substance: IPILIMUMAB
     Indication: Malignant melanoma
     Dosage: 1 PER 3 WEEK
     Route: 042
     Dates: start: 202508
  6. YERVOY [Suspect]
     Active Substance: IPILIMUMAB
     Dosage: 1 PER 3 WEEK, THIRD CYCLE
     Route: 042
     Dates: start: 20251021
  7. FENOTEROL HYDROBROMIDE\IPRATROPIUM BROMIDE [Concomitant]
     Active Substance: FENOTEROL HYDROBROMIDE\IPRATROPIUM BROMIDE
     Indication: Product used for unknown indication
     Dosage: 0.5MG/ML+0.25MG/ML 2-3 INHALATIONS PER DAY
  8. Cardipine [Concomitant]
     Indication: Arrhythmia
     Dosage: 0.5 TABLET AS PER NECESSARY
     Route: 048
  9. Flekainid [Concomitant]
     Indication: Arrhythmia
     Dosage: EXTENDED-RELEASE CAPSULE
     Route: 048
  10. Indapres [Concomitant]
     Indication: Hypertension
     Dosage: EXTENDED-RELEASE TABLET
     Route: 048
  11. Letroxin [Concomitant]
     Indication: Hypothyroidism
     Dosage: 1 PER 1 DAY
     Route: 048
  12. Rivarox [Concomitant]
     Indication: Arrhythmia
     Dosage: 1 PER 1 DAY
     Route: 048

REACTIONS (3)
  - Febrile neutropenia [Recovering/Resolving]
  - Rash erythematous [Unknown]
  - Malignant neoplasm progression [Unknown]

NARRATIVE: CASE EVENT DATE: 20251024
